FAERS Safety Report 9291438 (Version 4)
Quarter: 2013Q2

REPORT INFORMATION
  Report Type: Spontaneous
  Country: US (occurrence: US)
  Receive Date: 20130515
  Receipt Date: 20130527
  Transmission Date: 20140414
  Serious: No
  Sender: FDA-Public Use
  Company Number: US-009507513-1305USA008488

PATIENT
  Sex: Female

DRUGS (1)
  1. NEXPLANON [Suspect]
     Indication: CONTRACEPTION
     Dosage: 68 MG, SINGLE DOSE
     Route: 059
     Dates: start: 20130430

REACTIONS (3)
  - Device difficult to use [Recovered/Resolved]
  - Device kink [Recovered/Resolved]
  - No adverse event [Unknown]
